FAERS Safety Report 16478713 (Version 3)
Quarter: 2019Q3

REPORT INFORMATION
  Report Type: Report from Study
  Country: MX (occurrence: MX)
  Receive Date: 20190626
  Receipt Date: 20190722
  Transmission Date: 20191004
  Serious: Yes (Other)
  Sender: FDA-Public Use
  Company Number: PHHY2019MX146993

PATIENT
  Sex: Male
  Weight: 90 kg

DRUGS (2)
  1. EXFORGE [Suspect]
     Active Substance: AMLODIPINE BESYLATE\VALSARTAN
     Indication: HYPERTENSION
     Dosage: 1 DF (AMLODIPINE 5 MG,  VALSARTAN 160 MG), QD (6 YEARS AGO)
     Route: 048
  2. ASPIRINE PROTECT [Concomitant]
     Active Substance: ASPIRIN
     Indication: HYPERTENSION
     Dosage: 1 DF, QD (6 YEARS AGO)
     Route: 048

REACTIONS (13)
  - Asthenia [Unknown]
  - Limb mass [Recovered/Resolved]
  - Vomiting [Unknown]
  - Urticaria [Unknown]
  - Somnolence [Unknown]
  - Diabetes mellitus [Not Recovered/Not Resolved]
  - Nausea [Unknown]
  - Abscess limb [Unknown]
  - Arterial occlusive disease [Unknown]
  - Malaise [Unknown]
  - Pallor [Unknown]
  - General physical condition abnormal [Unknown]
  - Dysstasia [Unknown]
